FAERS Safety Report 9033510 (Version 1)
Quarter: 2013Q1

REPORT INFORMATION
  Report Type: Spontaneous
  Country: JP (occurrence: JP)
  Receive Date: 20130128
  Receipt Date: 20130128
  Transmission Date: 20140127
  Serious: Yes (Life-Threatening, Other)
  Sender: FDA-Public Use
  Company Number: JP-ALLERGAN-1301116US

PATIENT
  Age: 66 Year
  Sex: Male

DRUGS (8)
  1. ALESION TABLET [Suspect]
     Indication: PRODUCT USED FOR UNKNOWN INDICATION
     Dosage: 10 MG, QD
     Route: 048
  2. BI-SIFROL [Suspect]
     Indication: PARKINSON^S DISEASE
     Dosage: 0.5 MG, QD
     Route: 048
     Dates: start: 20110523, end: 20120814
  3. REMITCH [Suspect]
     Indication: PRODUCT USED FOR UNKNOWN INDICATION
     Dosage: 5 ?G, UNK
     Route: 048
  4. DOPS [Suspect]
     Indication: PRODUCT USED FOR UNKNOWN INDICATION
     Dosage: 100 MG, UNK
     Route: 048
  5. PROTECADIN [Concomitant]
     Indication: PRODUCT USED FOR UNKNOWN INDICATION
     Dosage: 10 MG, UNK
     Route: 048
  6. WARFARIN [Concomitant]
     Indication: PRODUCT USED FOR UNKNOWN INDICATION
     Dosage: 1.5 MG, UNK
     Route: 048
  7. ZYLORIC [Concomitant]
     Indication: PRODUCT USED FOR UNKNOWN INDICATION
     Dosage: 50 MG, UNK
     Route: 048
  8. VASOLAN [Concomitant]
     Indication: PRODUCT USED FOR UNKNOWN INDICATION
     Dosage: 80 MG, UNK
     Route: 048

REACTIONS (3)
  - Sudden onset of sleep [Unknown]
  - Road traffic accident [Unknown]
  - Drug interaction [Unknown]
